FAERS Safety Report 14710420 (Version 2)
Quarter: 2019Q1

REPORT INFORMATION
  Report Type: Spontaneous
  Country: US (occurrence: US)
  Receive Date: 20180403
  Receipt Date: 20190214
  Transmission Date: 20190417
  Serious: No
  Sender: FDA-Public Use
  Company Number: US-ROCHE-2002753

PATIENT
  Age: 78 Year
  Sex: Male

DRUGS (6)
  1. ERIVEDGE [Suspect]
     Active Substance: VISMODEGIB
     Indication: BASAL CELL CARCINOMA
     Route: 048
     Dates: start: 20170919
  2. MULTIVITAL [Concomitant]
  3. METAXALONE. [Concomitant]
     Active Substance: METAXALONE
  4. METOPROLOL SUCCINATE. [Concomitant]
     Active Substance: METOPROLOL SUCCINATE
  5. SIMVASTATIN. [Concomitant]
     Active Substance: SIMVASTATIN
  6. LISINOPRIL HCTZ [Concomitant]
     Active Substance: HYDROCHLOROTHIAZIDE\LISINOPRIL

REACTIONS (4)
  - Blood potassium increased [Unknown]
  - Hypothyroidism [Unknown]
  - Muscle spasms [Unknown]
  - Ageusia [Unknown]

NARRATIVE: CASE EVENT DATE: 20170927
